FAERS Safety Report 4797172-6 (Version None)
Quarter: 2005Q4

REPORT INFORMATION
  Report Type: 
  Country: None (occurrence: None)
  Receive Date: 20051013
  Receipt Date: 20051003
  Transmission Date: 20060501
  Serious: Yes (Other)
  Sender: FDA-Public Use
  Company Number: US-MERCK-0510USA02527

PATIENT
  Age: 52 Year
  Sex: Female
  Weight: 60 kg

DRUGS (4)
  1. VIOXX [Suspect]
     Route: 048
     Dates: start: 20010701, end: 20020701
  2. ZESTRIL [Concomitant]
     Route: 048
  3. ZESTRIL [Concomitant]
     Route: 048
  4. PRAVACHOL [Concomitant]
     Route: 048

REACTIONS (3)
  - CEREBROVASCULAR ACCIDENT [None]
  - HYPERTENSION [None]
  - RENAL INJURY [None]
